FAERS Safety Report 9964374 (Version 3)
Quarter: 2014Q2

REPORT INFORMATION
  Report Type: Spontaneous
  Country: US (occurrence: US)
  Receive Date: 20140305
  Receipt Date: 20140630
  Transmission Date: 20141212
  Serious: Yes (Other)
  Sender: FDA-Public Use
  Company Number: US-PFIZER INC-2014061808

PATIENT
  Age: 70 Year
  Sex: Female

DRUGS (2)
  1. LIPITOR [Suspect]
     Indication: LOW DENSITY LIPOPROTEIN INCREASED
     Dosage: UNK, AS DIRECTED
     Route: 048
     Dates: start: 200403, end: 200809
  2. LIPITOR [Suspect]
     Indication: CARDIOVASCULAR EVENT PROPHYLAXIS
     Dosage: UNK
     Route: 048
     Dates: end: 2012

REACTIONS (3)
  - Type 2 diabetes mellitus [Not Recovered/Not Resolved]
  - Neuropathy peripheral [Not Recovered/Not Resolved]
  - Visual impairment [Unknown]
